FAERS Safety Report 10165773 (Version 1)
Quarter: 2014Q2

REPORT INFORMATION
  Report Type: Spontaneous
  Country: US (occurrence: US)
  Receive Date: 20140510
  Receipt Date: 20140510
  Transmission Date: 20141212
  Serious: No
  Sender: FDA-Public Use
  Company Number: US-BRISTOL-MYERS SQUIBB COMPANY-19930056

PATIENT
  Age: 61 Year
  Sex: Male
  Weight: 87.07 kg

DRUGS (5)
  1. BYDUREON [Suspect]
  2. IBUPROFEN [Concomitant]
  3. TAGAMET [Concomitant]
     Dosage: TAGAMET ONGLYZA 5MG?ONGLYZA: LOT: 3G75193B  EXP: JUL2016
  4. LISINOPRIL [Concomitant]
  5. LOVASTATIN [Concomitant]

REACTIONS (3)
  - Injection site rash [Not Recovered/Not Resolved]
  - Injection site mass [Not Recovered/Not Resolved]
  - Injection site pain [Unknown]
